FAERS Safety Report 8343735-0 (Version None)
Quarter: 2012Q2

REPORT INFORMATION
  Report Type: 
  Country: None (occurrence: None)
  Receive Date: 20120508
  Receipt Date: 20120508
  Transmission Date: 20120825
  Serious: Yes (Other)
  Sender: FDA-Public Use
  Company Number: None

PATIENT
  Age: 64 Year
  Sex: Male
  Weight: 108.4 kg

DRUGS (1)
  1. PSORIASIN [Suspect]
     Indication: PSORIASIS
     Dosage: COVER AFFECTED AREA
     Route: 061
     Dates: start: 20120502, end: 20120503

REACTIONS (11)
  - AMNESIA [None]
  - CONFUSIONAL STATE [None]
  - FEELING ABNORMAL [None]
  - FATIGUE [None]
  - NAUSEA [None]
  - DIZZINESS [None]
  - HALLUCINATION, AUDITORY [None]
  - ROAD TRAFFIC ACCIDENT [None]
  - HEADACHE [None]
  - PAIN [None]
  - HYPERTENSION [None]
